FAERS Safety Report 23753359 (Version 1)
Quarter: 2024Q2

REPORT INFORMATION
  Report Type: Spontaneous
  Country: US (occurrence: None)
  Receive Date: 20240417
  Receipt Date: 20240417
  Transmission Date: 20240716
  Serious: No
  Sender: FDA-Public Use
  Company Number: None

PATIENT
  Age: 50 Year
  Sex: Female

DRUGS (1)
  1. RINVOQ [Suspect]
     Active Substance: UPADACITINIB
     Dosage: FREQUENCY : DAILY;?
     Route: 048

REACTIONS (8)
  - Dyspnoea [None]
  - Oxygen saturation decreased [None]
  - Pneumonia [None]
  - Chronic obstructive pulmonary disease [None]
  - Cardiac failure congestive [None]
  - Gait disturbance [None]
  - Sensory loss [None]
  - Therapy cessation [None]
